FAERS Safety Report 23797646 (Version 1)
Quarter: 2024Q2

REPORT INFORMATION
  Report Type: Spontaneous
  Country: IT (occurrence: None)
  Receive Date: 20240430
  Receipt Date: 20240430
  Transmission Date: 20240716
  Serious: Yes (Hospitalization)
  Sender: FDA-Public Use
  Company Number: 2024A096476

PATIENT
  Age: 71 Year
  Sex: Male

DRUGS (9)
  1. TICAGRELOR [Suspect]
     Active Substance: TICAGRELOR
     Indication: Antiplatelet therapy
     Route: 048
     Dates: start: 20190401, end: 20240416
  2. ASPIRIN [Suspect]
     Active Substance: ASPIRIN
     Indication: Antiplatelet therapy
     Dosage: 100.0MG UNKNOWN
     Route: 048
  3. EZATEROS [Concomitant]
  4. PANTOPRAZOLE SODIUM [Concomitant]
     Active Substance: PANTOPRAZOLE SODIUM
  5. LASIX [Concomitant]
     Active Substance: FUROSEMIDE
  6. RANEXA [Concomitant]
     Active Substance: RANOLAZINE
  7. ISMO [Concomitant]
     Active Substance: ISOSORBIDE MONONITRATE
  8. METOPROLOL [Concomitant]
     Active Substance: METOPROLOL
  9. MICARDIS [Concomitant]
     Active Substance: TELMISARTAN

REACTIONS (2)
  - Rectal haemorrhage [Recovering/Resolving]
  - Anaemia [Recovering/Resolving]

NARRATIVE: CASE EVENT DATE: 20240416
